FAERS Safety Report 8917379 (Version 2)
Quarter: 2012Q4

REPORT INFORMATION
  Report Type: 
  Country: US (occurrence: US)
  Receive Date: 20121120
  Receipt Date: 20121212
  Transmission Date: 20130627
  Serious: Yes (Other)
  Sender: FDA-Public Use
  Company Number: US-PFIZER INC-2012288135

PATIENT
  Age: 52 Year
  Sex: Female
  Weight: 83.45 kg

DRUGS (4)
  1. LYRICA [Suspect]
     Indication: FIBROMYALGIA
     Dosage: 50 mg, daily
     Dates: start: 201210, end: 2012
  2. LYRICA [Suspect]
     Dosage: 50 mg, 3x/day
     Dates: start: 2012, end: 20121112
  3. PROZAC [Suspect]
     Indication: DEPRESSION
     Dosage: UNK
  4. SEROQUEL [Concomitant]
     Indication: DEPRESSION
     Dosage: 150 mg, daily

REACTIONS (5)
  - Aphagia [Unknown]
  - Oral candidiasis [Not Recovered/Not Resolved]
  - Pain [Not Recovered/Not Resolved]
  - Drug intolerance [Unknown]
  - Weight decreased [Unknown]
